FAERS Safety Report 11455020 (Version 1)
Quarter: 2015Q3

REPORT INFORMATION
  Report Type: Spontaneous
  Country: US (occurrence: US)
  Receive Date: 20150831
  Receipt Date: 20150831
  Transmission Date: 20151125
  Serious: Yes (Other)
  Sender: FDA-Public Use
  Company Number: US-ELI_LILLY_AND_COMPANY-US201006005177

PATIENT
  Age: 30 Year
  Sex: Male

DRUGS (6)
  1. REMERON [Concomitant]
     Active Substance: MIRTAZAPINE
     Indication: DEPRESSION
     Dosage: 15 MG, UNKNOWN
     Route: 065
     Dates: start: 201004
  2. BUSPAR [Concomitant]
     Active Substance: BUSPIRONE HYDROCHLORIDE
  3. LAMICTAL [Concomitant]
     Active Substance: LAMOTRIGINE
  4. SEROQUEL [Concomitant]
     Active Substance: QUETIAPINE FUMARATE
  5. CYMBALTA [Suspect]
     Active Substance: DULOXETINE HYDROCHLORIDE
     Indication: BIPOLAR DISORDER
     Dosage: 60 MG, UNK
     Dates: start: 20100412, end: 20100525
  6. ABILIFY [Concomitant]
     Active Substance: ARIPIPRAZOLE
     Indication: BIPOLAR DISORDER
     Dosage: 5 MG, UNKNOWN
     Route: 065
     Dates: start: 201004

REACTIONS (1)
  - Generalised tonic-clonic seizure [Unknown]

NARRATIVE: CASE EVENT DATE: 20100525
